FAERS Safety Report 18567611 (Version 2)
Quarter: 2020Q4

REPORT INFORMATION
  Report Type: Spontaneous
  Country: US (occurrence: US)
  Receive Date: 20201201
  Receipt Date: 20201211
  Transmission Date: 20210114
  Serious: No
  Sender: FDA-Public Use
  Company Number: US-JNJFOC-20201146934

PATIENT

DRUGS (2)
  1. USTEKINUMAB [Suspect]
     Active Substance: USTEKINUMAB
     Indication: INFLAMMATORY BOWEL DISEASE
     Route: 058
  2. USTEKINUMAB [Suspect]
     Active Substance: USTEKINUMAB

REACTIONS (1)
  - Asymptomatic COVID-19 [Unknown]
